FAERS Safety Report 8837709 (Version 2)
Quarter: 2012Q4

REPORT INFORMATION
  Report Type: 
  Country: US (occurrence: US)
  Receive Date: 20121012
  Receipt Date: 20121112
  Transmission Date: 20130627
  Serious: Yes (Disabling, Other)
  Sender: FDA-Public Use
  Company Number: PHEH2012US019385

PATIENT
  Sex: Female
  Weight: 58.2 kg

DRUGS (6)
  1. TOBI [Suspect]
     Indication: CYSTIC FIBROSIS
     Route: 042
     Dates: start: 200908
  2. TOBI [Suspect]
     Dates: start: 2010
  3. TOBI [Suspect]
     Dates: start: 20100529, end: 20100618
  4. TOBI [Suspect]
     Dates: start: 20100710, end: 20100731
  5. TOBI [Suspect]
     Dates: start: 20100831, end: 20100901
  6. PULMOZYME [Concomitant]
     Indication: CYSTIC FIBROSIS
     Dosage: 1 mg/ ml

REACTIONS (5)
  - Ototoxicity [Recovered/Resolved with Sequelae]
  - Tinnitus [Unknown]
  - Vertigo [Unknown]
  - Deafness bilateral [Unknown]
  - General physical health deterioration [Unknown]
